FAERS Safety Report 7893874-3 (Version None)
Quarter: 2011Q4

REPORT INFORMATION
  Report Type: 
  Country: None (occurrence: None)
  Receive Date: 20111104
  Receipt Date: 20111101
  Transmission Date: 20120403
  Serious: Yes (Other)
  Sender: FDA-Public Use
  Company Number: PHHY2011US67801

PATIENT
  Sex: Female

DRUGS (5)
  1. LEXAPRO [Concomitant]
     Dosage: UNK UKN, QD
     Route: 048
  2. LORAZEPAM [Concomitant]
     Dosage: UNK UKN, PRN
     Route: 048
  3. GILENYA [Suspect]
     Indication: MULTIPLE SCLEROSIS
     Dosage: 0.5 MG, QD
     Route: 048
     Dates: start: 20110622
  4. TRAMADOL HCL [Concomitant]
     Dosage: UNK UKN, PRN
     Route: 048
  5. PROAIR HFA [Concomitant]
     Dosage: UNK UKN, QD

REACTIONS (3)
  - LYMPHADENITIS [None]
  - TOOTH DISORDER [None]
  - TOOTHACHE [None]
